FAERS Safety Report 4995256-0 (Version None)
Quarter: 2006Q2

REPORT INFORMATION
  Report Type: 
  Country: None (occurrence: None)
  Receive Date: 20060508
  Receipt Date: 20050829
  Transmission Date: 20061013
  Serious: Yes (Hospitalization)
  Sender: FDA-Public Use
  Company Number: US-MERCK-0508USA05100

PATIENT
  Age: 60 Year
  Sex: Female
  Weight: 114 kg

DRUGS (22)
  1. VIOXX [Suspect]
     Indication: PAIN
     Route: 048
     Dates: start: 19991104, end: 19991117
  2. VIOXX [Suspect]
     Route: 048
     Dates: start: 19991118, end: 20040101
  3. VIOXX [Suspect]
     Indication: OSTEOARTHRITIS
     Route: 048
     Dates: start: 19991104, end: 19991117
  4. VIOXX [Suspect]
     Route: 048
     Dates: start: 19991118, end: 20040101
  5. TYLENOL (CAPLET) [Concomitant]
     Route: 065
  6. IMIPRAMINE OXIDE [Concomitant]
     Route: 065
  7. PROZAC [Concomitant]
     Route: 065
  8. HYDROCHLOROTHIAZIDE AND LOSARTAN POTASSIUM [Concomitant]
     Route: 065
  9. BEXTRA [Concomitant]
     Route: 065
  10. ADVAIR DISKUS 100/50 [Concomitant]
     Route: 055
  11. COMBIVENT [Concomitant]
     Route: 065
  12. ASPIRIN [Concomitant]
     Route: 065
  13. NORVASC [Concomitant]
     Route: 048
  14. SLO-BID [Concomitant]
     Route: 048
  15. PREMARIN [Concomitant]
     Route: 048
  16. COZAAR [Concomitant]
     Route: 048
  17. GUAIFENESIN [Concomitant]
     Route: 048
  18. PRILOSEC [Concomitant]
     Route: 048
  19. CLARITIN [Concomitant]
     Route: 048
  20. PROVENTIL [Concomitant]
     Route: 048
  21. SEREVENT [Concomitant]
     Route: 048
  22. XENICAL [Concomitant]
     Route: 048

REACTIONS (21)
  - ABDOMINAL PAIN [None]
  - ANGINA PECTORIS [None]
  - BUNION [None]
  - BUNION OPERATION [None]
  - CHEST DISCOMFORT [None]
  - CHRONIC OBSTRUCTIVE PULMONARY DISEASE [None]
  - COLITIS [None]
  - CORONARY ARTERY DISEASE [None]
  - CORONARY ARTERY OCCLUSION [None]
  - CORONARY ARTERY STENOSIS [None]
  - COUGH [None]
  - DYSFUNCTIONAL UTERINE BLEEDING [None]
  - INJURY [None]
  - JOINT INJURY [None]
  - KNEE ARTHROPLASTY [None]
  - OTITIS MEDIA [None]
  - PNEUMONIA [None]
  - SEBORRHOEIC KERATOSIS [None]
  - THROMBOCYTHAEMIA [None]
  - UPPER RESPIRATORY TRACT INFECTION [None]
  - URINARY TRACT INFECTION [None]
